FAERS Safety Report 26062019 (Version 1)
Quarter: 2025Q4

REPORT INFORMATION
  Report Type: Spontaneous
  Country: JP (occurrence: JP)
  Receive Date: 20251119
  Receipt Date: 20251119
  Transmission Date: 20260118
  Serious: Yes (Other)
  Sender: SANDOZ
  Company Number: JP-HEXAL-SDZ2025JP085141AA

PATIENT
  Age: 45 Year

DRUGS (41)
  1. NELARABINE [Suspect]
     Active Substance: NELARABINE
     Indication: Acute lymphocytic leukaemia
     Dosage: 1500 MG/M2, DAY 1,3,5, IND2
     Route: 042
  2. NELARABINE [Suspect]
     Active Substance: NELARABINE
     Dosage: 1500 MG/M2, DAY 29,31,33, C-3
     Route: 042
  3. NELARABINE [Suspect]
     Active Substance: NELARABINE
     Dosage: 1500 MG/M2, DAY 29,31,33, C-5
     Route: 042
  4. CYCLOPHOSPHAMIDE ANHYDROUS [Suspect]
     Active Substance: CYCLOPHOSPHAMIDE ANHYDROUS
     Dosage: 1000 MG/M2, DAY 36
     Route: 042
  5. CYCLOPHOSPHAMIDE ANHYDROUS [Suspect]
     Active Substance: CYCLOPHOSPHAMIDE ANHYDROUS
     Dosage: 1000 MG/M2, DAY 36
     Route: 042
  6. CYCLOPHOSPHAMIDE ANHYDROUS [Suspect]
     Active Substance: CYCLOPHOSPHAMIDE ANHYDROUS
     Indication: Acute lymphocytic leukaemia
     Dosage: 1200 MG/M2, DAY 8
     Route: 065
  7. CYTARABINE [Suspect]
     Active Substance: CYTARABINE
     Dosage: 2 G/M2, DAY 1,2,3, C-1
     Route: 042
  8. CYTARABINE [Suspect]
     Active Substance: CYTARABINE
     Dosage: 2 G/M2, DAY 1,2,3?C-4
     Route: 042
  9. CYTARABINE [Suspect]
     Active Substance: CYTARABINE
     Dosage: 40MG, DAY 1, C-1
     Route: 037
  10. CYTARABINE [Suspect]
     Active Substance: CYTARABINE
     Dosage: 40MG, DAY 1, C-4
     Route: 037
  11. CYTARABINE [Suspect]
     Active Substance: CYTARABINE
     Dosage: 40MG, DAY 1,15, C-2
     Route: 037
  12. CYTARABINE [Suspect]
     Active Substance: CYTARABINE
     Dosage: 40MG, DAY 1,15, C-5
     Route: 037
  13. CYTARABINE [Suspect]
     Active Substance: CYTARABINE
     Dosage: 40MG, DAY 1,36, C-3
     Route: 037
  14. CYTARABINE [Suspect]
     Active Substance: CYTARABINE
     Indication: Acute lymphocytic leukaemia
     Dosage: 40MG, DAY 8,15, IND1
     Route: 037
  15. CYTARABINE [Suspect]
     Active Substance: CYTARABINE
     Dosage: 75 MG/M2, DAY 36-40,43-47, C-3
     Route: 042
  16. DECADRON (DEXAMETHASONE SODIUM PHOSPHATE) [Suspect]
     Active Substance: DEXAMETHASONE SODIUM PHOSPHATE
     Dosage: 40 MG/M2, DAY 1,2,3, C-1
     Route: 037
  17. DECADRON (DEXAMETHASONE SODIUM PHOSPHATE) [Suspect]
     Active Substance: DEXAMETHASONE SODIUM PHOSPHATE
     Dosage: 40 MG/M2, DAY 1,2,3, C-4
     Route: 037
  18. DECADRON (DEXAMETHASONE SODIUM PHOSPHATE) [Suspect]
     Active Substance: DEXAMETHASONE SODIUM PHOSPHATE
     Dosage: 4MG, DAY 1, C-1
     Route: 037
  19. DECADRON (DEXAMETHASONE SODIUM PHOSPHATE) [Suspect]
     Active Substance: DEXAMETHASONE SODIUM PHOSPHATE
     Dosage: 4MG, DAY 1, C-4
     Route: 037
  20. DECADRON (DEXAMETHASONE SODIUM PHOSPHATE) [Suspect]
     Active Substance: DEXAMETHASONE SODIUM PHOSPHATE
     Dosage: 4MG, DAY 1,15, C-2
     Route: 037
  21. DECADRON (DEXAMETHASONE SODIUM PHOSPHATE) [Suspect]
     Active Substance: DEXAMETHASONE SODIUM PHOSPHATE
     Dosage: 4MG, DAY 1,15, C-5
     Route: 037
  22. DECADRON (DEXAMETHASONE SODIUM PHOSPHATE) [Suspect]
     Active Substance: DEXAMETHASONE SODIUM PHOSPHATE
     Dosage: 4MG, DAY 1,36,C-3
     Route: 037
  23. DECADRON (DEXAMETHASONE SODIUM PHOSPHATE) [Suspect]
     Active Substance: DEXAMETHASONE SODIUM PHOSPHATE
     Dosage: 4MG, DAY 8, IND2
     Route: 037
  24. DECADRON (DEXAMETHASONE SODIUM PHOSPHATE) [Suspect]
     Active Substance: DEXAMETHASONE SODIUM PHOSPHATE
     Indication: Acute lymphocytic leukaemia
     Dosage: 4MG, DAY 8,15, IND1
     Route: 037
  25. DOXORUBICIN HYDROCHLORIDE [Suspect]
     Active Substance: DOXORUBICIN HYDROCHLORIDE
     Indication: Acute lymphocytic leukaemia
     Dosage: 30 MG/M2, DAY 1,8,15
     Route: 042
  26. DEXAMETHASONE [Suspect]
     Active Substance: DEXAMETHASONE
     Indication: Acute lymphocytic leukaemia
     Dosage: 10 MG/M2, 1-8,15-22, C-3
     Route: 048
  27. MERCAPTOPURINE [Suspect]
     Active Substance: MERCAPTOPURINE
     Indication: Acute lymphocytic leukaemia
     Dosage: 25 MG/M2, DAY 1-21, C-2
     Route: 065
  28. MERCAPTOPURINE [Suspect]
     Active Substance: MERCAPTOPURINE
     Dosage: 25 MG/M2, DAY 1-21, C-5
     Route: 048
  29. MERCAPTOPURINE [Suspect]
     Active Substance: MERCAPTOPURINE
     Dosage: 60 MG/M2, DAY 36-39, C-3
     Route: 048
  30. METHOTREXATE [Suspect]
     Active Substance: METHOTREXATE
     Dosage: 15 MG, DAY 1,36, C-3
     Route: 037
  31. METHOTREXATE [Suspect]
     Active Substance: METHOTREXATE
     Dosage: 15MG, DAY 1, C-1
     Route: 037
  32. METHOTREXATE [Suspect]
     Active Substance: METHOTREXATE
     Dosage: 15MG, DAY 1, C-4
     Route: 037
  33. METHOTREXATE [Suspect]
     Active Substance: METHOTREXATE
     Dosage: 15MG, DAY 1,15, C-2
     Route: 037
  34. METHOTREXATE [Suspect]
     Active Substance: METHOTREXATE
     Dosage: 15MG, DAY 1,15, C-5
     Route: 037
  35. METHOTREXATE [Suspect]
     Active Substance: METHOTREXATE
     Indication: Acute lymphocytic leukaemia
     Dosage: 15MG, DAY 8,15, IND1
     Route: 037
  36. METHOTREXATE [Suspect]
     Active Substance: METHOTREXATE
     Dosage: 3 G/M2, DAY 1,15, C-2
     Route: 037
  37. METHOTREXATE [Suspect]
     Active Substance: METHOTREXATE
     Dosage: 3 G/M2, DAY 1,15, C-5
     Route: 037
  38. VINCRISTINE SULFATE [Suspect]
     Active Substance: VINCRISTINE SULFATE
     Dosage: 1.3 MG/M2, DAY 1,15, C-2
     Route: 042
  39. VINCRISTINE SULFATE [Suspect]
     Active Substance: VINCRISTINE SULFATE
     Dosage: 1.3 MG/M2, DAY 1,15, C-5
     Route: 042
  40. VINCRISTINE SULFATE [Suspect]
     Active Substance: VINCRISTINE SULFATE
     Dosage: 1.3 MG/M2, DAY 1,8,15, C-3
     Route: 042
  41. VINCRISTINE SULFATE [Suspect]
     Active Substance: VINCRISTINE SULFATE
     Indication: Acute lymphocytic leukaemia
     Dosage: 1.3 MG/M2, DAY 8,15,22,29, IND1
     Route: 042

REACTIONS (5)
  - Peripheral sensory neuropathy [Recovering/Resolving]
  - Peripheral motor neuropathy [Recovering/Resolving]
  - Gait disturbance [Recovering/Resolving]
  - Bladder dysfunction [Recovering/Resolving]
  - Functional gastrointestinal disorder [Recovering/Resolving]
